FAERS Safety Report 22144117 (Version 2)
Quarter: 2023Q2

REPORT INFORMATION
  Report Type: Report from Study
  Country: US (occurrence: US)
  Receive Date: 20230327
  Receipt Date: 20230504
  Transmission Date: 20230721
  Serious: Yes (Hospitalization, Other)
  Sender: FDA-Public Use
  Company Number: US-ABBVIE-4705265

PATIENT
  Sex: Female

DRUGS (6)
  1. VENCLEXTA [Suspect]
     Active Substance: VENETOCLAX
     Indication: B-cell small lymphocytic lymphoma
     Dosage: 1X100MG TAB) BY MOUTH DAILY WEEK 3?TAKE WITH A MEAL AND WATER. DO NOT DRINK GRAPEFRUIT JUICE, EAT...
     Route: 048
  2. VENCLEXTA [Suspect]
     Active Substance: VENETOCLAX
     Indication: B-cell small lymphocytic lymphoma
     Dosage: 1X50MG TAB) DAILY BY MOUTH WEEK 2?TAKE WITH A MEAL AND WATER. DO NOT DRINK GRAPEFRUIT JUICE, EAT ...
     Route: 048
  3. VENCLEXTA [Suspect]
     Active Substance: VENETOCLAX
     Indication: B-cell small lymphocytic lymphoma
     Dosage: TAKE WITH A MEAL AND WATER. DO NOT DRINK GRAPEFRUIT JUICE, EAT GRAPEFRUIT, SEVILLE ORANGES OR STA...
     Route: 048
  4. VENCLEXTA [Suspect]
     Active Substance: VENETOCLAX
     Indication: B-cell small lymphocytic lymphoma
     Dosage: 2X100MG TABS) DAILY WEEK 4?TAKE WITH A MEAL AND WATER. DO NOT DRINK GRAPEFRUIT JUICE, EAT GRAPEFR...
     Route: 048
  5. VENCLEXTA [Suspect]
     Active Substance: VENETOCLAX
     Indication: B-cell small lymphocytic lymphoma
     Dosage: (2X10MG TABS BY MOUTH EVERY DAYON WEEK 1?TAKE WITH A MEAL AND WATER. DO NOT DRINK GRAPEFRUIT JUIC...
     Route: 048
  6. VENCLEXTA [Suspect]
     Active Substance: VENETOCLAX
     Indication: B-cell small lymphocytic lymphoma
     Dosage: TAKE WITH A MEAL AND WATER. DO NOT DRINK GRAPEFRUIT JUICE, EAT GRAPEFRUIT, SEVILLE ORANGES OR STA...
     Route: 048

REACTIONS (3)
  - Gastric cancer [Unknown]
  - Loss of consciousness [Unknown]
  - Recurrent cancer [Recovered/Resolved]
